FAERS Safety Report 8018335-2 (Version None)
Quarter: 2012Q1

REPORT INFORMATION
  Report Type: 
  Country: None (occurrence: None)
  Receive Date: 20120103
  Receipt Date: 20111221
  Transmission Date: 20120608
  Serious: Yes (Hospitalization, Other)
  Sender: FDA-Public Use
  Company Number: JP-JNJFOC-20111203637

PATIENT
  Sex: Female
  Weight: 41 kg

DRUGS (13)
  1. MICONAZOLE [Suspect]
     Indication: ORAL CANDIDIASIS
     Route: 049
     Dates: start: 20111107, end: 20111107
  2. WARFARIN SODIUM [Interacting]
     Indication: ATRIAL FIBRILLATION
     Route: 065
  3. MICONAZOLE [Suspect]
     Route: 049
     Dates: start: 20110921, end: 20110927
  4. WARFARIN SODIUM [Interacting]
     Route: 065
     Dates: start: 20111016
  5. WARFARIN SODIUM [Interacting]
     Route: 065
     Dates: start: 20040101, end: 20111015
  6. VERAPAMIL HCL [Concomitant]
     Indication: ATRIAL FIBRILLATION
     Route: 048
  7. LAC-B [Concomitant]
     Indication: CONSTIPATION
     Route: 048
     Dates: start: 20040101
  8. ALOSENN [Concomitant]
     Indication: CONSTIPATION
     Route: 048
     Dates: start: 20040101
  9. LENDORMIN [Concomitant]
     Indication: INSOMNIA
     Route: 048
     Dates: start: 20040101
  10. SELBEX [Concomitant]
     Indication: GASTRITIS
     Route: 048
     Dates: start: 20040101
  11. ASPIRIN [Concomitant]
     Indication: CEREBRAL INFARCTION
     Route: 048
     Dates: start: 20040101
  12. PIMENOL [Concomitant]
     Route: 048
  13. VERAPAMIL HCL [Concomitant]
     Route: 048
     Dates: start: 20040101

REACTIONS (4)
  - HAEMORRHAGE SUBCUTANEOUS [None]
  - HAEMATURIA [None]
  - DRUG INTERACTION [None]
  - INTERNATIONAL NORMALISED RATIO INCREASED [None]
